FAERS Safety Report 10136205 (Version 1)
Quarter: 2014Q2

REPORT INFORMATION
  Report Type: Spontaneous
  Country: GB (occurrence: GB)
  Receive Date: 20140429
  Receipt Date: 20140429
  Transmission Date: 20141212
  Serious: Yes (Other)
  Sender: FDA-Public Use
  Company Number: GB-RANBAXY-2014RR-80500

PATIENT
  Age: 34 Year
  Sex: Female

DRUGS (2)
  1. CO-AMOXICLAV 500/125 MG TABLETS [Suspect]
     Indication: VAGINAL INFECTION
     Dosage: UNK
     Route: 065
     Dates: end: 20140414
  2. METRONIDAZOLE [Concomitant]
     Indication: VAGINAL INFECTION
     Dosage: 400 MG
     Route: 065

REACTIONS (4)
  - Dyspnoea [Unknown]
  - Influenza like illness [Unknown]
  - Melaena [Unknown]
  - Abdominal pain [Unknown]
